FAERS Safety Report 4811618-6 (Version None)
Quarter: 2005Q4

REPORT INFORMATION
  Report Type: 
  Country: None (occurrence: None)
  Receive Date: 20051027
  Receipt Date: 20050719
  Transmission Date: 20060501
  Serious: Yes (Hospitalization, Other)
  Sender: FDA-Public Use
  Company Number: US-MERCK-0507USA02799

PATIENT
  Age: 43 Year
  Sex: Female

DRUGS (7)
  1. VIOXX [Suspect]
     Indication: SPINAL FRACTURE
     Route: 048
     Dates: start: 19990101, end: 20040701
  2. VIOXX [Suspect]
     Route: 048
     Dates: start: 19990101, end: 20040701
  3. VIOXX [Suspect]
     Indication: PAIN
     Route: 048
     Dates: start: 19990101, end: 20040701
  4. VIOXX [Suspect]
     Route: 048
     Dates: start: 19990101, end: 20040701
  5. ASPIRIN [Concomitant]
     Route: 065
  6. LIPITOR [Concomitant]
     Route: 065
  7. NEURONTIN [Concomitant]
     Route: 065

REACTIONS (3)
  - CEREBROVASCULAR ACCIDENT [None]
  - MYOCARDIAL INFARCTION [None]
  - TRANSIENT ISCHAEMIC ATTACK [None]
